FAERS Safety Report 10502125 (Version 1)
Quarter: 2014Q4

REPORT INFORMATION
  Report Type: Spontaneous
  Country: US (occurrence: US)
  Receive Date: 20141007
  Receipt Date: 20141007
  Transmission Date: 20150528
  Serious: Yes (Other)
  Sender: FDA-Public Use
  Company Number: US-PFIZER INC-2014272599

PATIENT
  Age: 67 Year
  Sex: Female
  Weight: 72.56 kg

DRUGS (7)
  1. PREMARIN [Suspect]
     Active Substance: ESTROGENS, CONJUGATED
     Indication: HORMONE REPLACEMENT THERAPY
     Dosage: 0.625 MG(1 TABLET), 1X/DAY
     Route: 048
     Dates: start: 1997, end: 201408
  2. PREMARIN [Suspect]
     Active Substance: ESTROGENS, CONJUGATED
     Indication: HORMONE REPLACEMENT THERAPY
     Dosage: 0.625 MG, 2X/WEEK
     Route: 067
     Dates: start: 1997
  3. PREMARIN [Suspect]
     Active Substance: ESTROGENS, CONJUGATED
     Dosage: 0.625 MG, 3X/DAY
     Route: 067
     Dates: end: 201407
  4. PRAVASTATIN [Concomitant]
     Active Substance: PRAVASTATIN\PRAVASTATIN SODIUM
     Indication: BLOOD CHOLESTEROL ABNORMAL
  5. QUETIAPINE [Concomitant]
     Active Substance: QUETIAPINE
     Indication: BIPOLAR DISORDER
     Dosage: 150 MG, DAILY (AT BED TIME)
  6. QUETIAPINE [Concomitant]
     Active Substance: QUETIAPINE
     Indication: MENTAL DISORDER
  7. POTASSIUM CHLORIDE. [Concomitant]
     Active Substance: POTASSIUM CHLORIDE
     Dosage: UNK

REACTIONS (5)
  - Malaise [Unknown]
  - Depression [Unknown]
  - Neoplasm malignant [Unknown]
  - Nervousness [Unknown]
  - Hyperhidrosis [Unknown]
